FAERS Safety Report 8985145 (Version 1)
Quarter: 2012Q4

REPORT INFORMATION
  Report Type: 
  Country: AR (occurrence: AR)
  Receive Date: 20121226
  Receipt Date: 20121226
  Transmission Date: 20130627
  Serious: Yes (Other)
  Sender: FDA-Public Use
  Company Number: PHHY2012AR118687

PATIENT
  Age: 68 Year
  Sex: Female

DRUGS (1)
  1. DIOVAN [Suspect]
     Indication: HYPERTENSION
     Dosage: 0.5 DF, daily
     Route: 048

REACTIONS (2)
  - Foot fracture [Recovering/Resolving]
  - Fall [Recovering/Resolving]
